FAERS Safety Report 8120003-3 (Version None)
Quarter: 2012Q1

REPORT INFORMATION
  Report Type: 
  Country: None (occurrence: None)
  Receive Date: 20120203
  Receipt Date: 20120120
  Transmission Date: 20120608
  Serious: Yes (Hospitalization, Other)
  Sender: FDA-Public Use
  Company Number: JPI-P-019433

PATIENT
  Age: 65 Year
  Sex: Female
  Weight: 1164.3836 kg

DRUGS (2)
  1. XYREM [Suspect]
     Indication: CATAPLEXY
     Dosage: 9 GM (4.5 GM, 2 IN 1  D) ORAL
     Route: 048
     Dates: start: 20040820
  2. MULTIPLE UNSPECIFIED MEDICATIONS [Concomitant]

REACTIONS (4)
  - CHOLELITHIASIS [None]
  - DYSPEPSIA [None]
  - ANGINA PECTORIS [None]
  - SILENT MYOCARDIAL INFARCTION [None]
